FAERS Safety Report 18834172 (Version 1)
Quarter: 2021Q1

REPORT INFORMATION
  Report Type: Spontaneous
  Country: US (occurrence: US)
  Receive Date: 20210203
  Receipt Date: 20210203
  Transmission Date: 20210419
  Serious: Yes (Hospitalization, Other)
  Sender: FDA-Public Use
  Company Number: US-SA-2021SA031264

PATIENT
  Age: 54 Year
  Sex: Female

DRUGS (1)
  1. LANTUS SOLOSTAR [Suspect]
     Active Substance: INSULIN GLARGINE
     Dosage: 30 IU, AT BEDTIME
     Dates: start: 202006

REACTIONS (6)
  - Hallucination [Recovering/Resolving]
  - Gait inability [Unknown]
  - COVID-19 [Recovering/Resolving]
  - Depression [Recovering/Resolving]
  - Hypoaesthesia [Recovering/Resolving]
  - Lung disorder [Recovering/Resolving]

NARRATIVE: CASE EVENT DATE: 2020
